FAERS Safety Report 4500992-6 (Version None)
Quarter: 2004Q4

REPORT INFORMATION
  Report Type: 
  Country: None (occurrence: None)
  Receive Date: 20041115
  Receipt Date: 20041005
  Transmission Date: 20050328
  Serious: Yes (Other)
  Sender: FDA-Public Use
  Company Number: US-GLAXOSMITHKLINE-A0528536A

PATIENT
  Age: 15 Year
  Sex: Female
  Weight: 68.2 kg

DRUGS (3)
  1. LAMICTAL [Suspect]
     Indication: EPILEPSY
     Route: 048
  2. CARAFATE [Concomitant]
  3. CONTRACEPTIVE [Concomitant]
     Route: 062

REACTIONS (6)
  - BLOODY DISCHARGE [None]
  - BREAST CYST [None]
  - BREAST DISCHARGE [None]
  - BREAST MASS [None]
  - HOT FLUSH [None]
  - LOSS OF CONSCIOUSNESS [None]
